FAERS Safety Report 6304193-0 (Version None)
Quarter: 2009Q3

REPORT INFORMATION
  Report Type: 
  Country: None (occurrence: None)
  Receive Date: 20090811
  Receipt Date: 20090731
  Transmission Date: 20100115
  Serious: Yes (Other)
  Sender: FDA-Public Use
  Company Number: US-BAYER-200927538NA

PATIENT
  Age: 29 Year
  Sex: Female

DRUGS (4)
  1. BETASERON [Suspect]
     Indication: MULTIPLE SCLEROSIS
     Dosage: TOTAL DAILY DOSE: 2 MIU
     Route: 058
     Dates: start: 20090717
  2. BETASERON [Suspect]
     Dosage: TOTAL DAILY DOSE: 4 MIU
     Route: 058
  3. RITALIN [Concomitant]
     Indication: ATTENTION DEFICIT/HYPERACTIVITY DISORDER
     Dates: start: 20000101
  4. CITALOPRAM [Concomitant]
     Indication: DEPRESSION

REACTIONS (7)
  - CRYING [None]
  - DEPRESSED MOOD [None]
  - DEPRESSION [None]
  - FATIGUE [None]
  - SOMNOLENCE [None]
  - SUICIDAL IDEATION [None]
  - VOMITING [None]
